FAERS Safety Report 5621559-2 (Version None)
Quarter: 2008Q1

REPORT INFORMATION
  Report Type: 
  Country: None (occurrence: None)
  Receive Date: 20080114
  Receipt Date: 20070607
  Transmission Date: 20080703
  Serious: Yes (Hospitalization)
  Sender: FDA-Public Use
  Company Number: A03200703648

PATIENT
  Age: 45 Year
  Sex: Male
  Weight: 100.22 kg

DRUGS (7)
  1. PLAVIX [Suspect]
     Indication: CARDIAC OPERATION
     Dosage: 75 MG QD - ORAL
     Route: 048
     Dates: start: 20030401
  2. CLOPIDOGREL - TABLET - 75 MG [Suspect]
     Indication: CARDIAC OPERATION
     Dosage: 75 MG QD - ORAL
     Route: 048
  3. ENALAPRIL MALEATE [Concomitant]
  4. ATORVASTATIN CALCIUM [Concomitant]
  5. METOPROLOL TARTRATE [Concomitant]
  6. ACETYLSALICYLIC ACID SRT [Concomitant]
  7. MULTI-VITAMIN [Concomitant]

REACTIONS (3)
  - CORONARY ARTERY OCCLUSION [None]
  - PANCREATITIS [None]
  - PLATELET COUNT DECREASED [None]
